FAERS Safety Report 5010802-9 (Version None)
Quarter: 2006Q2

REPORT INFORMATION
  Report Type: 
  Country: None (occurrence: None)
  Receive Date: 20060524
  Receipt Date: 20060524
  Transmission Date: 20061013
  Serious: Yes (Hospitalization)
  Sender: FDA-Public Use
  Company Number: None

PATIENT
  Age: 63 Year
  Sex: Female
  Weight: 71.8 kg

DRUGS (2)
  1. AUGMENTIN '125' [Suspect]
     Indication: LOCALISED INFECTION
     Dosage: 875 MG BID PO
     Route: 048
  2. CIPROFLOXACIN [Suspect]
     Indication: LOCALISED INFECTION
     Dosage: 500MG  BID  PO
     Route: 048

REACTIONS (10)
  - ABDOMINAL PAIN [None]
  - ALOPECIA [None]
  - CLOSTRIDIUM DIFFICILE COLITIS [None]
  - DRUG INEFFECTIVE [None]
  - DRUG INTOLERANCE [None]
  - GASTROINTESTINAL INFLAMMATION [None]
  - HYPERTENSION [None]
  - NAUSEA [None]
  - PAIN OF SKIN [None]
  - WEIGHT DECREASED [None]
